FAERS Safety Report 24782780 (Version 1)
Quarter: 2024Q4

REPORT INFORMATION
  Report Type: Report from Study
  Country: CA (occurrence: CA)
  Receive Date: 20241227
  Receipt Date: 20241227
  Transmission Date: 20250114
  Serious: Yes (Hospitalization, Other)
  Sender: ABBVIE
  Company Number: CA-ABBVIE-6062850

PATIENT
  Age: 61 Year
  Sex: Female

DRUGS (1)
  1. SKYRIZI [Suspect]
     Active Substance: RISANKIZUMAB-RZAA
     Indication: Crohn^s disease
     Route: 058
     Dates: start: 20230929

REACTIONS (18)
  - Immunodeficiency [Unknown]
  - Abdominal pain [Recovering/Resolving]
  - Liver function test increased [Unknown]
  - Malaise [Unknown]
  - Pyrexia [Unknown]
  - Rhinorrhoea [Unknown]
  - Nausea [Recovered/Resolved]
  - Vomiting [Recovered/Resolved]
  - Diarrhoea [Recovering/Resolving]
  - Gastrointestinal wall thickening [Not Recovered/Not Resolved]
  - Abdominal discomfort [Unknown]
  - Intestinal resection [Unknown]
  - Abscess intestinal [Unknown]
  - Portal vein thrombosis [Unknown]
  - Abdominal pain [Unknown]
  - Feeling of body temperature change [Unknown]
  - Drug-induced liver injury [Unknown]
  - Hypophagia [Unknown]

NARRATIVE: CASE EVENT DATE: 20240807
